FAERS Safety Report 25883352 (Version 1)
Quarter: 2025Q4

REPORT INFORMATION
  Report Type: Spontaneous
  Country: US (occurrence: US)
  Receive Date: 20251006
  Receipt Date: 20251006
  Transmission Date: 20260118
  Serious: Yes (Other)
  Sender: COOPERSURGICAL
  Company Number: US-COOPERSURGICAL, INC.-2025CPS007066

PATIENT
  Sex: Female
  Weight: 82.993 kg

DRUGS (1)
  1. PARAGARD T 380A [Suspect]
     Active Substance: COPPER
     Indication: Contraception
     Dosage: UNK
     Dates: start: 20150120

REACTIONS (13)
  - Surgery [Recovered/Resolved]
  - Uterine polyp [Recovered/Resolved]
  - Polypectomy [Recovered/Resolved]
  - Device breakage [Recovered/Resolved]
  - Foreign body in reproductive tract [Recovered/Resolved]
  - Complication of device removal [Recovered/Resolved]
  - Embedded device [Recovered/Resolved]
  - Endometrial thickening [Unknown]
  - Influenza like illness [Unknown]
  - Nausea [Unknown]
  - Muscle spasms [Recovered/Resolved]
  - Device expulsion [Recovered/Resolved]
  - Menometrorrhagia [Unknown]

NARRATIVE: CASE EVENT DATE: 20180101
